FAERS Safety Report 9161503 (Version 1)
Quarter: 2013Q1

REPORT INFORMATION
  Report Type: Spontaneous
  Country: US (occurrence: US)
  Receive Date: 20130313
  Receipt Date: 20130313
  Transmission Date: 20140127
  Serious: Yes (Congenital Anomaly)
  Sender: FDA-Public Use
  Company Number: US-FRI-1000043263

PATIENT
  Age: 0 Year
  Sex: Male

DRUGS (2)
  1. LEXAPRO [Suspect]
     Dates: end: 20090305
  2. CELEXA [Suspect]
     Dates: end: 20090305

REACTIONS (1)
  - Spina bifida [Not Recovered/Not Resolved]
